FAERS Safety Report 5611267-6 (Version None)
Quarter: 2008Q1

REPORT INFORMATION
  Report Type: 
  Country: None (occurrence: None)
  Receive Date: 20080201
  Receipt Date: 20080124
  Transmission Date: 20080703
  Serious: Yes (Hospitalization)
  Sender: FDA-Public Use
  Company Number: CH-BRISTOL-MYERS SQUIBB COMPANY-13993571

PATIENT
  Age: 66 Year
  Sex: Female

DRUGS (4)
  1. CETUXIMAB [Suspect]
     Indication: OESOPHAGEAL CARCINOMA
     Dosage: FIRST INFUSION GIVEN ON 17-OCT-2007 - IV 400 MG/M2 ONCE; 250 MG/M2 UNKNOWN-07NOV07.
     Route: 042
     Dates: start: 20071017
  2. CISPLATIN [Suspect]
     Indication: OESOPHAGEAL CARCINOMA
     Dosage: MOST RECENT INFUSION GIVEN ON 17-OCT-2007
     Route: 042
     Dates: start: 20071017
  3. CARBOPLATIN [Suspect]
     Indication: OESOPHAGEAL CARCINOMA
     Dosage: MOST RECENT INFUSION GIVEN ON 07-NOV-2007
     Route: 042
     Dates: start: 20071107
  4. TAXOTERE [Suspect]
     Indication: OESOPHAGEAL CARCINOMA
     Dosage: FIRST INFUSION GIVEN ON 18-OCT-2007
     Route: 042
     Dates: start: 20071018

REACTIONS (1)
  - ACUTE FEBRILE NEUTROPHILIC DERMATOSIS [None]
